FAERS Safety Report 6243269-3 (Version None)
Quarter: 2009Q2

REPORT INFORMATION
  Report Type: 
  Country: None (occurrence: None)
  Receive Date: 20090624
  Receipt Date: 20090609
  Transmission Date: 20091009
  Serious: Yes (Hospitalization)
  Sender: FDA-Public Use
  Company Number: PHHY2009SI22565

PATIENT
  Age: 69 Year
  Sex: Female
  Weight: 64 kg

DRUGS (1)
  1. DIOVAN HCT [Suspect]
     Dosage: 160/12.5
     Dates: start: 20080902

REACTIONS (3)
  - FRACTURE [None]
  - IMMOBILE [None]
  - SURGERY [None]
